FAERS Safety Report 7108457-2 (Version None)
Quarter: 2010Q4

REPORT INFORMATION
  Report Type: 
  Country: None (occurrence: None)
  Receive Date: 20101117
  Receipt Date: 20101108
  Transmission Date: 20110411
  Serious: Yes (Death, Hospitalization)
  Sender: FDA-Public Use
  Company Number: B0684664A

PATIENT
  Age: 59 Year
  Sex: Female

DRUGS (4)
  1. AUGMENTIN XR [Suspect]
     Indication: PNEUMONIA
     Dosage: 1G TWICE PER DAY
     Route: 048
     Dates: start: 20100813, end: 20100815
  2. TAVANIC [Suspect]
     Indication: RESPIRATORY TRACT INFECTION
     Route: 048
     Dates: start: 20100802, end: 20100811
  3. TAZOCEL [Concomitant]
     Dates: start: 20100815, end: 20100830
  4. URBASON [Concomitant]
     Route: 042
     Dates: start: 20100815

REACTIONS (3)
  - CONDITION AGGRAVATED [None]
  - CYTOLYTIC HEPATITIS [None]
  - DISEASE COMPLICATION [None]
